FAERS Safety Report 6920624-7 (Version None)
Quarter: 2010Q3

REPORT INFORMATION
  Report Type: 
  Country: None (occurrence: None)
  Receive Date: 20100812
  Receipt Date: 20100804
  Transmission Date: 20110219
  Serious: Yes (Hospitalization)
  Sender: FDA-Public Use
  Company Number: US-BRISTOL-MYERS SQUIBB COMPANY-15233521

PATIENT
  Age: 71 Year
  Sex: Male

DRUGS (4)
  1. MITOMYCIN [Suspect]
     Indication: PROSTATE CANCER
  2. CETUXIMAB [Concomitant]
  3. OXALIPLATIN [Concomitant]
  4. IRINOTECAN HCL [Concomitant]

REACTIONS (1)
  - INTERSTITIAL LUNG DISEASE [None]
